FAERS Safety Report 9198475 (Version 1)
Quarter: 2013Q1

REPORT INFORMATION
  Report Type: Spontaneous
  Country: US (occurrence: US)
  Receive Date: 20130329
  Receipt Date: 20130329
  Transmission Date: 20140127
  Serious: Yes (Death)
  Sender: FDA-Public Use
  Company Number: US-TEVA-394658USA

PATIENT
  Age: 65 Year
  Sex: Male

DRUGS (4)
  1. FOLINIC ACID [Suspect]
     Dosage: EVERY CYCLE
     Route: 042
  2. ZALTRAP [Suspect]
     Dosage: EVERY CYCLE
     Route: 042
  3. FLUOROURACIL [Suspect]
     Dosage: EVERY CYCLE
     Route: 042
  4. IRINOTECAN [Suspect]
     Dosage: EVERY CYCLE
     Route: 042

REACTIONS (1)
  - Disease progression [Fatal]
